FAERS Safety Report 9643223 (Version 1)
Quarter: 2013Q4

REPORT INFORMATION
  Report Type: Spontaneous
  Country: US (occurrence: US)
  Receive Date: 20131024
  Receipt Date: 20131024
  Transmission Date: 20140711
  Serious: Yes (Hospitalization, Other)
  Sender: FDA-Public Use
  Company Number: US-BAYER-2013-128047

PATIENT
  Age: 27 Year
  Sex: Female
  Weight: 83.9 kg

DRUGS (14)
  1. YASMIN [Suspect]
  2. YAZ [Suspect]
  3. PREVACID [Concomitant]
     Dosage: 30 MG, UNK
     Dates: start: 20070709
  4. PREVACID [Concomitant]
     Dosage: 30 MG, UNK
     Dates: start: 20070806
  5. ROBAXIN [Concomitant]
     Dosage: 750 MG, TID
     Route: 048
     Dates: start: 20070722
  6. CYCLOBENZAPRINE [Concomitant]
     Dosage: 5 MG, UNK
     Route: 048
     Dates: start: 20070725
  7. HYDROCODONE/ACETAMINOPHEN [Concomitant]
     Dosage: 10/500 MG
     Dates: start: 20070723
  8. MOTRIN [Concomitant]
  9. FLEXERIL [Concomitant]
  10. MORPHINE [Concomitant]
     Indication: PAIN
  11. TORADOL [Concomitant]
  12. SOLU-MEDROL [Concomitant]
  13. LEVAQUIN [Concomitant]
  14. PROTONIX [Concomitant]

REACTIONS (4)
  - Pulmonary embolism [None]
  - Cholelithiasis [None]
  - Subclavian vein thrombosis [None]
  - Thrombophlebitis superficial [None]
